FAERS Safety Report 6204253-9 (Version None)
Quarter: 2009Q2

REPORT INFORMATION
  Report Type: 
  Country: None (occurrence: None)
  Receive Date: 20090522
  Receipt Date: 20090508
  Transmission Date: 20091009
  Serious: Yes (Other)
  Sender: FDA-Public Use
  Company Number: 233522K09USA

PATIENT
  Age: 55 Year
  Sex: Male
  Weight: 100 kg

DRUGS (5)
  1. REBIF [Suspect]
     Indication: MULTIPLE SCLEROSIS
     Dosage: 44 MCG, 3 IN 1 WEEKS, SUBCUTANEOUS
     Route: 058
     Dates: start: 20060606
  2. ZOLOFT [Concomitant]
  3. NEURONTIN [Concomitant]
  4. BACLOFEN [Concomitant]
  5. OXYBUTYNIN (OXYBUTYNIN /00538901/) [Concomitant]

REACTIONS (7)
  - ARTHRALGIA [None]
  - CATARACT [None]
  - FALL [None]
  - INJECTION SITE ERYTHEMA [None]
  - INJECTION SITE HAEMATOMA [None]
  - PAIN [None]
  - SLEEP APNOEA SYNDROME [None]
